FAERS Safety Report 9229273 (Version 1)
Quarter: 2013Q2

REPORT INFORMATION
  Report Type: Spontaneous
  Country: US (occurrence: US)
  Receive Date: 20130412
  Receipt Date: 20130412
  Transmission Date: 20140414
  Serious: No
  Sender: FDA-Public Use
  Company Number: US-ASTELLAS-2012US011512

PATIENT
  Age: 58 Year
  Sex: Male

DRUGS (12)
  1. PROGRAF [Suspect]
     Indication: RENAL TRANSPLANT
     Dosage: 2 MG, BID
     Route: 048
     Dates: start: 201208
  2. PROGRAF [Suspect]
     Dosage: 2MG AND 1.5 MG
     Route: 048
  3. PROGRAF [Suspect]
     Dosage: 1.5 MG, BID
     Route: 048
     Dates: start: 201208
  4. IMURAN                             /00001501/ [Concomitant]
     Indication: PRODUCT USED FOR UNKNOWN INDICATION
     Dosage: 75 MG, UID/QD
     Route: 048
  5. BACTRIM [Concomitant]
     Indication: PRODUCT USED FOR UNKNOWN INDICATION
     Dosage: 400/80 MG Q AM, 8 PM
     Route: 048
  6. MYCELEX TROCHE [Concomitant]
     Indication: PRODUCT USED FOR UNKNOWN INDICATION
     Dosage: 10 MG, 9 AM, 1-2 PM, 4 PM, 9 PM
     Route: 048
  7. LANTUS [Concomitant]
     Indication: PRODUCT USED FOR UNKNOWN INDICATION
     Dosage: 38-40 Q AM BEFORE BREAKFAST
     Route: 058
  8. NOVOLOG [Concomitant]
     Indication: PRODUCT USED FOR UNKNOWN INDICATION
     Dosage: APPROX 12-16 U BEFORE MEALS
     Route: 065
  9. METOPROLOL [Concomitant]
     Indication: PRODUCT USED FOR UNKNOWN INDICATION
     Dosage: 25 MG, 9 AM, 8 PM
     Route: 048
  10. CRESTOR [Concomitant]
     Indication: PRODUCT USED FOR UNKNOWN INDICATION
     Dosage: Q PM, 8 PM
     Route: 048
  11. ASPIRIN [Concomitant]
     Indication: PRODUCT USED FOR UNKNOWN INDICATION
     Dosage: 81 MG, UID/QD
     Route: 065
  12. ANTI-REJECTION REGIMEN [Concomitant]
     Indication: RENAL TRANSPLANT
     Dosage: UNK
     Route: 065
     Dates: end: 201208

REACTIONS (2)
  - Immunosuppressant drug level increased [Unknown]
  - Tremor [Unknown]
